FAERS Safety Report 20882153 (Version 2)
Quarter: 2022Q2

REPORT INFORMATION
  Report Type: Spontaneous
  Country: FR (occurrence: FR)
  Receive Date: 20220527
  Receipt Date: 20220616
  Transmission Date: 20220720
  Serious: Yes (Other)
  Sender: FDA-Public Use
  Company Number: None

PATIENT
  Age: 69 Year
  Sex: Male
  Weight: 55.5 kg

DRUGS (4)
  1. VINCRISTINE SULFATE [Suspect]
     Active Substance: VINCRISTINE SULFATE
     Indication: B-cell lymphoma
     Dosage: 2MG, FREQUENCY TIME 1TOTAL, DURATION 1DAYS
     Route: 041
     Dates: start: 20220423, end: 20220423
  2. DOXORUBICIN [Suspect]
     Active Substance: DOXORUBICIN
     Indication: B-cell lymphoma
     Dosage: 86MG, FREQUENCY TIME 1TOTAL, DURATION 1DAYS
     Route: 041
     Dates: start: 20220426, end: 20220426
  3. CYCLOPHOSPHAMIDE [Suspect]
     Active Substance: CYCLOPHOSPHAMIDE
     Indication: B-cell lymphoma
     Dosage: 1300MG, FREQUENCY TIME 1TOTAL, DURATION 1DAYS
     Route: 041
     Dates: start: 20220423, end: 20220423
  4. PAXLOVID [Suspect]
     Active Substance: NIRMATRELVIR\RITONAVIR
     Indication: COVID-19
     Dosage: 3DF, FREQUENCY TIME 1DAYS, DURATION 4DAYS, NIRMATRELVIR (PF-07321332),RITONAVIR
     Route: 048
     Dates: start: 20220426, end: 20220430

REACTIONS (1)
  - Hepatic cytolysis [Recovering/Resolving]

NARRATIVE: CASE EVENT DATE: 20220427
